FAERS Safety Report 5660349-1 (Version None)
Quarter: 2008Q1

REPORT INFORMATION
  Report Type: 
  Country: None (occurrence: None)
  Receive Date: 20080311
  Receipt Date: 20071106
  Transmission Date: 20080703
  Serious: Yes (Other)
  Sender: FDA-Public Use
  Company Number: US-BAYER-200713194BCC

PATIENT
  Age: 36 Year
  Sex: Male
  Weight: 124 kg

DRUGS (1)
  1. ALEVE [Suspect]
     Indication: HEADACHE
     Dosage: UNIT DOSE: 220 MG
     Route: 048
     Dates: start: 20070930, end: 20071001

REACTIONS (1)
  - HAEMATOCHEZIA [None]
